FAERS Safety Report 18232647 (Version 9)
Quarter: 2021Q1

REPORT INFORMATION
  Report Type: Report from Study
  Country: US (occurrence: US)
  Receive Date: 20200904
  Receipt Date: 20210208
  Transmission Date: 20210419
  Serious: Yes (Other)
  Sender: FDA-Public Use
  Company Number: US-PFIZER INC-2020338435

PATIENT
  Age: 52 Year
  Sex: Female

DRUGS (3)
  1. IBRANCE [Suspect]
     Active Substance: PALBOCICLIB
     Indication: BREAST CANCER FEMALE
     Dosage: 125 MG, CYCLIC (DAILY FOR 21 DAYS OF A 28 DAY CYCLE)
     Route: 048
     Dates: start: 20200812, end: 20200825
  2. IBRANCE [Suspect]
     Active Substance: PALBOCICLIB
     Dosage: 75 MG, CYCLIC (DAILY FOR 14 DAYS OF 28 DAY CYCLE )
     Route: 048
     Dates: start: 20201116
  3. IBRANCE [Suspect]
     Active Substance: PALBOCICLIB
     Dosage: 75 MG, CYCLIC (DAILY FOR 21 DAYS OF 28 DAY CYCLE)
     Route: 048
     Dates: start: 20200912, end: 20201009

REACTIONS (7)
  - Product use issue [Unknown]
  - Nausea [Unknown]
  - Fatigue [Unknown]
  - Leukopenia [Not Recovered/Not Resolved]
  - Myelosuppression [Unknown]
  - Off label use [Unknown]
  - Hot flush [Not Recovered/Not Resolved]

NARRATIVE: CASE EVENT DATE: 2020
